FAERS Safety Report 7545841-7 (Version None)
Quarter: 2011Q2

REPORT INFORMATION
  Report Type: 
  Country: None (occurrence: None)
  Receive Date: 20110613
  Receipt Date: 20110613
  Transmission Date: 20111010
  Serious: No
  Sender: FDA-Public Use
  Company Number: None

PATIENT
  Age: 37 Year
  Sex: Male
  Weight: 81.6475 kg

DRUGS (2)
  1. DIPHENHYDRAMINE HCL [Suspect]
     Indication: MYCOTIC ALLERGY
     Dosage: 1-2 TABLETS AS NEEDED, DAILY PO
     Route: 048
     Dates: start: 20110115, end: 20110415
  2. DIPHENHYDRAMINE HCL [Suspect]
     Indication: SEASONAL ALLERGY
     Dosage: 1-2 TABLETS AS NEEDED, DAILY PO
     Route: 048
     Dates: start: 20110115, end: 20110415

REACTIONS (3)
  - PRODUCT MEASURED POTENCY ISSUE [None]
  - PRODUCT QUALITY ISSUE [None]
  - DRUG INEFFECTIVE [None]
